FAERS Safety Report 6450345-9 (Version None)
Quarter: 2009Q4

REPORT INFORMATION
  Report Type: 
  Country: None (occurrence: None)
  Receive Date: 20091123
  Receipt Date: 20091112
  Transmission Date: 20100525
  Serious: Yes (Other)
  Sender: FDA-Public Use
  Company Number: US-ROCHE-669603

PATIENT
  Age: 34 Year
  Sex: Female

DRUGS (4)
  1. OSELTAMIVIR [Suspect]
     Indication: H1N1 INFLUENZA
     Dosage: ADMINISTERED FOR 10 DAYS
     Route: 048
  2. AMANTADINE [Concomitant]
  3. CEFEPIME [Concomitant]
  4. VANCOMYCIN [Concomitant]

REACTIONS (2)
  - DRUG EXPOSURE DURING PREGNANCY [None]
  - RENAL FAILURE ACUTE [None]
